FAERS Safety Report 11246034 (Version 2)
Quarter: 2015Q3

REPORT INFORMATION
  Report Type: Spontaneous
  Country: AT (occurrence: AT)
  Receive Date: 20150708
  Receipt Date: 20150722
  Transmission Date: 20151125
  Serious: Yes (Hospitalization, Other)
  Sender: FDA-Public Use
  Company Number: AT-AMGEN GMBH-AUTSP2015066391

PATIENT
  Age: 83 Year
  Sex: Female
  Weight: 58 kg

DRUGS (1)
  1. PROLIA [Suspect]
     Active Substance: DENOSUMAB
     Indication: OSTEOPOROSIS
     Dosage: UNK
     Route: 058
     Dates: start: 20150115

REACTIONS (8)
  - Diverticulitis [Unknown]
  - Eosinophilic colitis [Unknown]
  - Diarrhoea [Recovering/Resolving]
  - Malaise [Unknown]
  - Hepatic cyst [Unknown]
  - Cholecystectomy [Unknown]
  - Listless [Unknown]
  - Renal cyst [Unknown]

NARRATIVE: CASE EVENT DATE: 20150116
